FAERS Safety Report 17881555 (Version 6)
Quarter: 2021Q1

REPORT INFORMATION
  Report Type: Report from Study
  Country: US (occurrence: US)
  Receive Date: 20200610
  Receipt Date: 20210120
  Transmission Date: 20210419
  Serious: No
  Sender: FDA-Public Use
  Company Number: US-SA-2020SA138615

PATIENT
  Age: 43 Year
  Sex: Female

DRUGS (2)
  1. TERIFLUNOMIDE. [Suspect]
     Active Substance: TERIFLUNOMIDE
     Dosage: 14 MG, QD
     Route: 048
     Dates: start: 202011
  2. TERIFLUNOMIDE. [Suspect]
     Active Substance: TERIFLUNOMIDE
     Indication: MULTIPLE SCLEROSIS
     Dosage: 14 MG, QD
     Route: 048
     Dates: start: 20200527, end: 202011

REACTIONS (5)
  - Haematoma [Not Recovered/Not Resolved]
  - Product dose omission in error [Unknown]
  - Contusion [Not Recovered/Not Resolved]
  - Depression [Unknown]
  - Fall [Unknown]

NARRATIVE: CASE EVENT DATE: 202006
